FAERS Safety Report 7424224-4 (Version None)
Quarter: 2011Q2

REPORT INFORMATION
  Report Type: 
  Country: None (occurrence: None)
  Receive Date: 20110419
  Receipt Date: 20110328
  Transmission Date: 20111010
  Serious: Yes (Hospitalization, Other)
  Sender: FDA-Public Use
  Company Number: US-BAYER-201038461NA

PATIENT
  Sex: Female
  Weight: 70 kg

DRUGS (11)
  1. YASMIN [Suspect]
     Indication: PREMENSTRUAL SYNDROME
  2. OCELLA [Suspect]
     Indication: ACNE
     Dosage: UNK
     Dates: start: 20030101, end: 20080101
  3. TRICOR [Concomitant]
     Indication: BLOOD CHOLESTEROL INCREASED
     Dosage: 145 MG, UNK
     Dates: start: 20030701, end: 20081101
  4. OCELLA [Suspect]
     Indication: PREMENSTRUAL SYNDROME
  5. PEPCID AC [Concomitant]
  6. YASMIN [Suspect]
     Indication: ACNE
     Dosage: UNK
     Dates: start: 20030101, end: 20080101
  7. TRICOR [Concomitant]
     Dosage: 160 MG, UNK
  8. REGLAN [Concomitant]
  9. TRIAMIZIDE [Concomitant]
     Dosage: UNK
  10. YAZ [Suspect]
     Indication: ACNE
  11. MULTIVITAMIN PREPARATION + MINERAL SUPPLEMENT [Concomitant]

REACTIONS (7)
  - GALLBLADDER DISORDER [None]
  - NAUSEA [None]
  - ABDOMINAL DISTENSION [None]
  - PAIN [None]
  - INJURY [None]
  - CHOLELITHIASIS [None]
  - BILIARY DYSKINESIA [None]
